FAERS Safety Report 10076933 (Version 1)
Quarter: 2014Q2

REPORT INFORMATION
  Report Type: Spontaneous
  Country: BR (occurrence: BR)
  Receive Date: 20140414
  Receipt Date: 20140414
  Transmission Date: 20141212
  Serious: Yes (Other)
  Sender: FDA-Public Use
  Company Number: BR-GLAXOSMITHKLINE-B0972150A

PATIENT
  Sex: Male

DRUGS (1)
  1. COMBODART [Suspect]
     Indication: PROSTATIC DISORDER
     Dosage: 1TAB PER DAY

REACTIONS (6)
  - Dementia Alzheimer^s type [Recovered/Resolved]
  - Respiratory tract infection [Unknown]
  - Dysphagia [Recovered/Resolved]
  - Malnutrition [Not Recovered/Not Resolved]
  - Prostatomegaly [Unknown]
  - Drug administration error [Unknown]
